FAERS Safety Report 4950794-1 (Version None)
Quarter: 2006Q1

REPORT INFORMATION
  Report Type: 
  Country: None (occurrence: None)
  Receive Date: 20060321
  Receipt Date: 20060321
  Transmission Date: 20060701
  Serious: Yes (Hospitalization)
  Sender: FDA-Public Use
  Company Number: None

PATIENT
  Sex: Female
  Weight: 52.1637 kg

DRUGS (1)
  1. FENTANYL [Suspect]
     Indication: PAIN
     Dosage: 1 PATCH EVERY 72 HOURS TRANSERMAL
     Route: 062
     Dates: start: 20060215, end: 20060302

REACTIONS (9)
  - BODY TEMPERATURE FLUCTUATION [None]
  - CHEST PAIN [None]
  - DYSKINESIA [None]
  - DYSPNOEA [None]
  - HYPOVENTILATION [None]
  - INSOMNIA [None]
  - MALAISE [None]
  - TREMOR [None]
  - VOMITING [None]
